FAERS Safety Report 9598418 (Version 2)
Quarter: 2013Q4

REPORT INFORMATION
  Report Type: Spontaneous
  Country: US (occurrence: US)
  Receive Date: 20131004
  Receipt Date: 20131004
  Transmission Date: 20140711
  Serious: No
  Sender: FDA-Public Use
  Company Number: US-AMGEN-USASP2013018169

PATIENT
  Age: 58 Year
  Sex: Female
  Weight: 86.44 kg

DRUGS (3)
  1. ENBREL [Suspect]
     Indication: RHEUMATOID ARTHRITIS
     Dosage: 50 MG, QWK
     Route: 058
     Dates: start: 20120918, end: 20121109
  2. PREDNISONE [Concomitant]
     Dosage: 20 MG, QD X 10 DAYS
     Route: 048
     Dates: start: 20121018, end: 20121109
  3. ORENCIA [Concomitant]
     Dosage: 125 MG/ML, QWK
     Route: 058
     Dates: start: 20121106

REACTIONS (8)
  - Rash generalised [Recovered/Resolved]
  - Pain [Recovered/Resolved]
  - Swelling [Recovered/Resolved]
  - Erythema [Recovered/Resolved]
  - Pruritus [Recovered/Resolved]
  - Hypersensitivity [Unknown]
  - Rash [Recovered/Resolved]
  - Rash pruritic [Recovered/Resolved]
